FAERS Safety Report 13829878 (Version 2)
Quarter: 2017Q3

REPORT INFORMATION
  Report Type: Spontaneous
  Country: FR (occurrence: FR)
  Receive Date: 20170803
  Receipt Date: 20170906
  Transmission Date: 20171127
  Serious: Yes (Hospitalization, Other)
  Sender: FDA-Public Use
  Company Number: FR-ELI_LILLY_AND_COMPANY-FR201707008612

PATIENT
  Age: 51 Year
  Sex: Male

DRUGS (7)
  1. ALIMTA [Suspect]
     Active Substance: PEMETREXED DISODIUM
     Indication: LUNG ADENOCARCINOMA
     Dosage: 500 MG/M2, CYCLICAL
     Route: 042
     Dates: start: 201705
  2. HYDROCORTISONE. [Concomitant]
     Active Substance: HYDROCORTISONE
     Indication: PRODUCT USED FOR UNKNOWN INDICATION
     Dosage: 20 MG, DAILY
     Route: 048
  3. RADIOTHERAPY [Concomitant]
     Active Substance: RADIATION THERAPY
     Indication: LUNG ADENOCARCINOMA
     Dosage: UNK, UNKNOWN
     Route: 065
  4. CISPLATINE MYLAN [Suspect]
     Active Substance: CISPLATIN
     Indication: LUNG ADENOCARCINOMA
     Dosage: 75 MG/M2, CYCLICAL
     Route: 042
     Dates: start: 201705
  5. DOSTINEX [Concomitant]
     Active Substance: CABERGOLINE
     Indication: PROLACTIN-PRODUCING PITUITARY TUMOUR
     Dosage: 0.5 MG, DAILY
     Route: 048
  6. NAVELBINE [Concomitant]
     Active Substance: VINORELBINE TARTRATE
     Indication: LUNG ADENOCARCINOMA
     Dosage: UNK, UNKNOWN
     Route: 065
  7. LEVOTHYROX [Concomitant]
     Active Substance: LEVOTHYROXINE
     Indication: PRODUCT USED FOR UNKNOWN INDICATION
     Dosage: 150 UG, DAILY
     Route: 048
     Dates: start: 2009

REACTIONS (5)
  - Photosensitivity reaction [Recovered/Resolved]
  - Thermal burn [Recovering/Resolving]
  - Burns second degree [Recovered/Resolved]
  - Inappropriate schedule of drug administration [Unknown]
  - Pancytopenia [Unknown]

NARRATIVE: CASE EVENT DATE: 201705
